FAERS Safety Report 7332966-4 (Version None)
Quarter: 2011Q1

REPORT INFORMATION
  Report Type: 
  Country: None (occurrence: None)
  Receive Date: 20110228
  Receipt Date: 20110228
  Transmission Date: 20110831
  Serious: No
  Sender: FDA-Public Use
  Company Number: None

PATIENT
  Weight: 62.7 kg

DRUGS (6)
  1. URSODIOL [Concomitant]
  2. ATENOLOL [Concomitant]
  3. PRAMIPEXOLE DIHYDROCHLORIDE [Suspect]
     Indication: PARKINSON'S DISEASE
     Dosage: 1.5 TAB  B.I.D. P.O
     Route: 048
     Dates: end: 20110216
  4. AZILECT [Concomitant]
  5. MIRTAZAPINE [Concomitant]
  6. ZETIA [Concomitant]

REACTIONS (3)
  - SENSORY DISTURBANCE [None]
  - TREMOR [None]
  - PRODUCT SUBSTITUTION ISSUE [None]
